FAERS Safety Report 7096380-1 (Version None)
Quarter: 2010Q4

REPORT INFORMATION
  Report Type: 
  Country: None (occurrence: None)
  Receive Date: 20101111
  Receipt Date: 20101006
  Transmission Date: 20110411
  Serious: No
  Sender: FDA-Public Use
  Company Number: US-BRISTOL-MYERS SQUIBB COMPANY-15282759

PATIENT
  Age: 75 Year
  Sex: Female

DRUGS (11)
  1. IXEMPRA KIT [Suspect]
     Indication: BREAST CANCER
     Route: 042
     Dates: start: 20081117
  2. XELODA [Concomitant]
     Dosage: BID IN 2WKS
  3. VITAMIN B6 [Concomitant]
     Dosage: ALSO TAKEN 1600MG EVERY DAY FORM 9SEP10 PO
  4. ZOMETA [Concomitant]
  5. OSCAL [Concomitant]
     Route: 048
     Dates: start: 20100809
  6. MULTI-VITAMIN [Concomitant]
     Route: 048
     Dates: start: 20100909
  7. ACETYLSALICYLIC ACID [Concomitant]
     Route: 048
     Dates: start: 20100909
  8. LORAZEPAM [Concomitant]
     Route: 048
     Dates: start: 20100909
  9. GABAPENTIN [Concomitant]
     Route: 048
     Dates: start: 20100909
  10. CIPRO [Concomitant]
     Route: 048
     Dates: start: 20100909
  11. TRIAMTERENE [Concomitant]
     Route: 048
     Dates: start: 20100909

REACTIONS (2)
  - DRUG ADMINISTRATION ERROR [None]
  - NO ADVERSE EVENT [None]
